FAERS Safety Report 8112465-2 (Version None)
Quarter: 2012Q1

REPORT INFORMATION
  Report Type: 
  Country: None (occurrence: None)
  Receive Date: 20120203
  Receipt Date: 20120201
  Transmission Date: 20120608
  Serious: No
  Sender: FDA-Public Use
  Company Number: US-PFIZER INC-2012028312

PATIENT
  Sex: Female
  Weight: 63.492 kg

DRUGS (3)
  1. ADVIL CONGESTION RELIEF [Suspect]
     Indication: COUGH
  2. ADVIL CONGESTION RELIEF [Suspect]
     Indication: HEADACHE
  3. ADVIL CONGESTION RELIEF [Suspect]
     Indication: SINUS HEADACHE
     Dosage: 200/10MG, DAILY
     Route: 048
     Dates: start: 20120128, end: 20120131

REACTIONS (3)
  - SOMNOLENCE [None]
  - FEELING DRUNK [None]
  - HEADACHE [None]
